FAERS Safety Report 4818602-7 (Version None)
Quarter: 2005Q4

REPORT INFORMATION
  Report Type: 
  Country: None (occurrence: None)
  Receive Date: 20051031
  Receipt Date: 20051012
  Transmission Date: 20060501
  Serious: Yes (Hospitalization)
  Sender: FDA-Public Use
  Company Number: WAES 0507USA01881

PATIENT
  Age: 62 Year
  Sex: Male

DRUGS (8)
  1. COZAAR [Suspect]
     Indication: HYPERTENSION
     Dosage: SEE IMAGE
     Route: 048
     Dates: start: 20010418, end: 20010422
  2. COZAAR [Suspect]
     Indication: HYPERTENSION
     Dosage: SEE IMAGE
     Route: 048
     Dates: start: 20010413, end: 20010703
  3. COZAAR [Suspect]
     Indication: HYPERTENSION
     Dosage: SEE IMAGE
     Route: 048
     Dates: start: 20010704, end: 20011009
  4. COZAAR [Suspect]
     Indication: HYPERTENSION
     Dosage: SEE IMAGE
     Route: 048
     Dates: start: 20011010, end: 20040607
  5. COZAAR [Suspect]
     Indication: HYPERTENSION
     Dosage: SEE IMAGE
     Route: 048
     Dates: start: 20040608, end: 20040701
  6. COZAAR [Suspect]
     Indication: HYPERTENSION
     Dosage: SEE IMAGE
     Route: 048
     Dates: start: 20010423, end: 20040907
  7. NORVASC [Concomitant]
  8. GUANABENZ ACETATE [Concomitant]

REACTIONS (13)
  - ABDOMINAL DISTENSION [None]
  - ANAEMIA [None]
  - AZOTAEMIA [None]
  - CARDIAC FAILURE [None]
  - CARDIOMEGALY [None]
  - DYSPNOEA [None]
  - HAEMODIALYSIS [None]
  - HYPOXIA [None]
  - OEDEMA [None]
  - PLEURAL EFFUSION [None]
  - PULMONARY CONGESTION [None]
  - RENAL IMPAIRMENT [None]
  - WEIGHT INCREASED [None]
